FAERS Safety Report 8583865-1 (Version None)
Quarter: 2012Q3

REPORT INFORMATION
  Report Type: 
  Country: None (occurrence: None)
  Receive Date: 20120810
  Receipt Date: 20120731
  Transmission Date: 20120928
  Serious: Yes (Disabling, Other)
  Sender: FDA-Public Use
  Company Number: US-009507513-1205USA05004

PATIENT

DRUGS (3)
  1. FOSAMAX [Suspect]
     Indication: BONE DISORDER
     Dosage: UNK
     Route: 048
     Dates: start: 20000101, end: 20031001
  2. FOSAMAX [Suspect]
     Indication: OSTEOPOROSIS
     Dosage: 70 MG, UNK
     Route: 048
     Dates: start: 20000101
  3. FOSAMAX [Suspect]
     Dosage: 70 MG, UNK
     Route: 048
     Dates: start: 20021216, end: 20031030

REACTIONS (13)
  - LOW TURNOVER OSTEOPATHY [None]
  - TOOTH FRACTURE [None]
  - FALL [None]
  - PNEUMONIA [None]
  - PAIN IN EXTREMITY [None]
  - WRIST FRACTURE [None]
  - GROIN PAIN [None]
  - BLOOD DISORDER [None]
  - BONE DISORDER [None]
  - FEMUR FRACTURE [None]
  - MOBILITY DECREASED [None]
  - LIMB DEFORMITY [None]
  - ROAD TRAFFIC ACCIDENT [None]
